FAERS Safety Report 5262552-1 (Version None)
Quarter: 2007Q1

REPORT INFORMATION
  Report Type: 
  Country: None (occurrence: None)
  Receive Date: 20070312
  Receipt Date: 20070227
  Transmission Date: 20070707
  Serious: Yes (Other)
  Sender: FDA-Public Use
  Company Number: PHEH2007US02472

PATIENT
  Age: 43 Year
  Sex: Female

DRUGS (9)
  1. CLOZARIL [Suspect]
     Indication: SCHIZOAFFECTIVE DISORDER
  2. CLOZAPINE [Suspect]
     Indication: SCHIZOAFFECTIVE DISORDER
     Dosage: 475 MG, QD
     Dates: start: 20051001
  3. METFORMIN [Concomitant]
  4. GLUCOTROL [Concomitant]
  5. VITAMIN CAP [Concomitant]
  6. ASPIRIN [Concomitant]
  7. FOLIC ACID [Concomitant]
  8. ABILIFY [Concomitant]
  9. CALCIUM [Concomitant]

REACTIONS (2)
  - CERVIX CARCINOMA STAGE I [None]
  - HYSTERECTOMY [None]
